FAERS Safety Report 6395286-0 (Version None)
Quarter: 2009Q4

REPORT INFORMATION
  Report Type: 
  Country: None (occurrence: None)
  Receive Date: 20091009
  Receipt Date: 20091005
  Transmission Date: 20100525
  Serious: Yes (Disabling)
  Sender: FDA-Public Use
  Company Number: A0810570A

PATIENT
  Age: 20 Year
  Sex: Female

DRUGS (2)
  1. LAMICTAL XR [Suspect]
     Indication: EPILEPSY
     Route: 048
  2. KEPPRA [Concomitant]

REACTIONS (4)
  - DIPLOPIA [None]
  - DRUG LEVEL INCREASED [None]
  - NAUSEA [None]
  - VOMITING [None]
